FAERS Safety Report 8826645 (Version 3)
Quarter: 2012Q4

REPORT INFORMATION
  Report Type: Report from Study
  Country: JP (occurrence: JP)
  Receive Date: 20121005
  Receipt Date: 20121221
  Transmission Date: 20130627
  Serious: Yes (Hospitalization)
  Sender: FDA-Public Use
  Company Number: JP-B.I. PHARMACEUTICALS,INC./RIDGEFIELD-2012-BP-23867NB

PATIENT
  Age: 78 Year
  Sex: Female
  Weight: 44.7 kg

DRUGS (6)
  1. PRADAXA [Suspect]
     Indication: ATRIAL FIBRILLATION
     Dosage: 220 mg
     Route: 048
     Dates: start: 20120518, end: 20120910
  2. MAINTATE [Concomitant]
     Indication: ATRIAL FIBRILLATION
     Dosage: 5 mg
     Route: 048
  3. SOTACOR [Concomitant]
     Indication: ATRIAL FIBRILLATION
     Dosage: 160 mg
     Route: 048
  4. MICARDIS [Concomitant]
     Indication: HYPERTENSION
     Dosage: 20 mg
     Route: 048
  5. ASVERIN (TIPEPIDINE HIBENZATE) [Concomitant]
     Indication: ATRIAL FIBRILLATION
     Dosage: 60 mg
     Route: 048
  6. HERBESSER R [Concomitant]
     Indication: ATRIAL FIBRILLATION
     Dosage: 100 mg
     Route: 048

REACTIONS (2)
  - Peripheral ischaemia [Recovered/Resolved]
  - Drug ineffective [Unknown]
